FAERS Safety Report 15506093 (Version 1)
Quarter: 2018Q4

REPORT INFORMATION
  Report Type: Spontaneous
  Country: US (occurrence: US)
  Receive Date: 20181010
  Receipt Date: 20181010
  Transmission Date: 20190205
  Serious: Yes (Disabling, Other)
  Sender: FDA-Public Use
  Company Number: None

PATIENT
  Sex: Female
  Weight: 60.33 kg

DRUGS (6)
  1. HYDROCODONE [Concomitant]
     Active Substance: HYDROCODONE
  2. LEXAPRO [Concomitant]
     Active Substance: ESCITALOPRAM OXALATE
  3. NORCO/TRIS 325/10MG [Suspect]
     Active Substance: ACETAMINOPHEN\HYDROCODONE BITARTRATE
     Indication: PRODUCT USED FOR UNKNOWN INDICATION
     Dates: start: 201808, end: 20180905
  4. ONE A DAY WOMENS [Concomitant]
  5. VIT B-12 [Concomitant]
  6. DIAZEPAM. [Concomitant]
     Active Substance: DIAZEPAM

REACTIONS (11)
  - Product substitution issue [None]
  - Disturbance in attention [None]
  - Mood altered [None]
  - Arthritis [None]
  - Suicidal ideation [None]
  - Headache [None]
  - Asthenia [None]
  - Inadequate analgesia [None]
  - Social avoidant behaviour [None]
  - Feeling abnormal [None]
  - Pruritus [None]
